FAERS Safety Report 16440197 (Version 1)
Quarter: 2019Q2

REPORT INFORMATION
  Report Type: Spontaneous
  Country: GB (occurrence: GB)
  Receive Date: 20190617
  Receipt Date: 20190617
  Transmission Date: 20190711
  Serious: Yes (Disabling)
  Sender: FDA-Public Use
  Company Number: GB-PFIZER INC-2019252843

PATIENT
  Age: 71 Year
  Sex: Female
  Weight: 59.87 kg

DRUGS (1)
  1. LATANOPROST. [Suspect]
     Active Substance: LATANOPROST
     Indication: OCULAR HYPERTENSION
     Dosage: 2 GTT, 1X/DAY
     Route: 047
     Dates: start: 20190409, end: 20190417

REACTIONS (7)
  - Pollakiuria [Unknown]
  - Insomnia [Unknown]
  - Dizziness [Unknown]
  - Myalgia [Unknown]
  - Muscle rigidity [Unknown]
  - Arthralgia [Unknown]
  - Headache [Unknown]
